FAERS Safety Report 6582325-7 (Version None)
Quarter: 2010Q1

REPORT INFORMATION
  Report Type: 
  Country: None (occurrence: None)
  Receive Date: 20100212
  Receipt Date: 20100212
  Transmission Date: 20100710
  Serious: Yes (Hospitalization)
  Sender: FDA-Public Use
  Company Number: None

PATIENT
  Age: 69 Year
  Sex: Male

DRUGS (1)
  1. DOXEPIN HCL [Suspect]
     Indication: PAIN
     Dates: start: 20090901, end: 20091017

REACTIONS (3)
  - ANGIOEDEMA [None]
  - DYSPNOEA [None]
  - RASH [None]
